FAERS Safety Report 11160944 (Version 1)
Quarter: 2015Q2

REPORT INFORMATION
  Report Type: Spontaneous
  Country: US (occurrence: US)
  Receive Date: 20150604
  Receipt Date: 20150604
  Transmission Date: 20150821
  Serious: No
  Sender: FDA-Public Use
  Company Number: US-SA-2014SA071748

PATIENT
  Age: 96 Year
  Sex: Female

DRUGS (2)
  1. SOLOSTAR [Concomitant]
     Active Substance: DEVICE
     Route: 058
  2. LANTUS SOLOSTAR [Suspect]
     Active Substance: INSULIN GLARGINE
     Indication: PRODUCT USED FOR UNKNOWN INDICATION
     Dosage: PRODUCT START DATE REPORTED AS COUPLE OF YEARS DOSE:6 UNIT(S)
     Route: 058

REACTIONS (3)
  - Blood glucose increased [Unknown]
  - Malaise [Unknown]
  - Pallor [Unknown]
